FAERS Safety Report 4683296-0 (Version None)
Quarter: 2005Q2

REPORT INFORMATION
  Report Type: 
  Country: None (occurrence: None)
  Receive Date: 20050606
  Receipt Date: 20050606
  Transmission Date: 20051028
  Serious: Yes (Other)
  Sender: FDA-Public Use
  Company Number: None

PATIENT
  Age: 63 Year
  Sex: Female
  Weight: 81.1939 kg

DRUGS (6)
  1. FENTANYL [Suspect]
     Indication: INTERVERTEBRAL DISC PROTRUSION
     Dosage: 1 PATCH EVERY 72 HRS TRANSDERMA
     Route: 062
     Dates: start: 20020701, end: 20020901
  2. FENTANYL [Suspect]
     Indication: NERVE COMPRESSION
     Dosage: 1 PATCH EVERY 72 HRS TRANSDERMA
     Route: 062
     Dates: start: 20020701, end: 20020901
  3. FENTANYL [Suspect]
     Indication: SCIATICA
     Dosage: 1 PATCH EVERY 72 HRS TRANSDERMA
     Route: 062
     Dates: start: 20020701, end: 20020901
  4. FENTANYL [Suspect]
     Indication: INTERVERTEBRAL DISC PROTRUSION
     Dosage: 1 PATCH EVERY 72 HRS TRANSDERMA
     Route: 062
     Dates: start: 20040401, end: 20040601
  5. FENTANYL [Suspect]
     Indication: NERVE COMPRESSION
     Dosage: 1 PATCH EVERY 72 HRS TRANSDERMA
     Route: 062
     Dates: start: 20040401, end: 20040601
  6. FENTANYL [Suspect]
     Indication: SCIATICA
     Dosage: 1 PATCH EVERY 72 HRS TRANSDERMA
     Route: 062
     Dates: start: 20040401, end: 20040601

REACTIONS (3)
  - PAIN [None]
  - PHARMACEUTICAL PRODUCT COMPLAINT [None]
  - THERAPEUTIC PRODUCT INEFFECTIVE [None]
